FAERS Safety Report 20136755 (Version 1)
Quarter: 2021Q4

REPORT INFORMATION
  Report Type: Spontaneous
  Country: US (occurrence: US)
  Receive Date: 20211201
  Receipt Date: 20211201
  Transmission Date: 20220304
  Serious: No
  Sender: FDA-Public Use
  Company Number: US-INSUD PHARMA-2111US02899

PATIENT

DRUGS (1)
  1. OMEPRAZOLE [Suspect]
     Active Substance: OMEPRAZOLE
     Indication: Gastrooesophageal reflux disease
     Dosage: BID
     Route: 048
     Dates: start: 20210824

REACTIONS (4)
  - Drug ineffective [Not Recovered/Not Resolved]
  - Gastrooesophageal reflux disease [Not Recovered/Not Resolved]
  - Product dose omission issue [Unknown]
  - Product size issue [Unknown]

NARRATIVE: CASE EVENT DATE: 20210824
